FAERS Safety Report 14124069 (Version 1)
Quarter: 2017Q4

REPORT INFORMATION
  Report Type: Spontaneous
  Country: MT (occurrence: MT)
  Receive Date: 20171025
  Receipt Date: 20171025
  Transmission Date: 20180321
  Serious: Yes (Life-Threatening, Other)
  Sender: FDA-Public Use
  Company Number: MT-MACLEODS PHARMACEUTICALS US LTD-MAC2017006235

PATIENT

DRUGS (3)
  1. QUETIAPINE. [Suspect]
     Active Substance: QUETIAPINE
     Indication: DEMENTIA WITH LEWY BODIES
     Dosage: 25 MG, UNK
     Route: 065
  2. QUETIAPINE. [Suspect]
     Active Substance: QUETIAPINE
     Dosage: 50 MG, UNK
     Route: 065
  3. SALINE [Concomitant]
     Active Substance: SODIUM CHLORIDE
     Indication: DIURETIC THERAPY
     Dosage: UNK (FORCED DIURESIS)
     Route: 042

REACTIONS (13)
  - Malignant hypertension [Recovered/Resolved]
  - Accelerated hypertension [Recovered/Resolved]
  - Depressed level of consciousness [Recovered/Resolved]
  - Hypertonia [Recovered/Resolved]
  - Muscle rigidity [Recovered/Resolved]
  - Hypoxia [Recovered/Resolved]
  - Microangiopathic haemolytic anaemia [Recovering/Resolving]
  - Retinal haemorrhage [Recovered/Resolved]
  - Haemoglobinuria [Recovered/Resolved]
  - Flushing [Recovered/Resolved]
  - Tachypnoea [Recovered/Resolved]
  - Neuroleptic malignant syndrome [Recovered/Resolved]
  - Hyperpyrexia [Recovered/Resolved]
